FAERS Safety Report 17607954 (Version 3)
Quarter: 2020Q2

REPORT INFORMATION
  Report Type: Spontaneous
  Country: US (occurrence: US)
  Receive Date: 20200401
  Receipt Date: 20200519
  Transmission Date: 20200713
  Serious: Yes (Other)
  Sender: FDA-Public Use
  Company Number: US-BEH-2020115242

PATIENT
  Age: 16 Year
  Sex: Male
  Weight: 68.9 kg

DRUGS (32)
  1. IDELVION [Suspect]
     Active Substance: COAGULATION FACTOR IX RECOMBINANT HUMAN
     Dosage: 4500 INTERNATIONAL UNIT
     Route: 065
     Dates: start: 20200316
  2. IDELVION [Suspect]
     Active Substance: COAGULATION FACTOR IX RECOMBINANT HUMAN
     Dosage: 3500 INTERNATIONAL UNIT, SINGLE
     Route: 065
     Dates: start: 20200327
  3. IDELVION [Suspect]
     Active Substance: COAGULATION FACTOR IX RECOMBINANT HUMAN
     Dosage: 4500 INTERNATIONAL UNIT
     Route: 065
     Dates: start: 20200317
  4. IDELVION [Suspect]
     Active Substance: COAGULATION FACTOR IX RECOMBINANT HUMAN
     Dosage: 3500 INTERNATIONAL UNIT, SINGLE
     Route: 065
     Dates: start: 20200325
  5. IDELVION [Suspect]
     Active Substance: COAGULATION FACTOR IX RECOMBINANT HUMAN
     Dosage: 4500 INTERNATIONAL UNIT
     Route: 042
     Dates: start: 20200311
  6. IDELVION [Suspect]
     Active Substance: COAGULATION FACTOR IX RECOMBINANT HUMAN
     Dosage: 4500 INTERNATIONAL UNIT
     Route: 065
     Dates: start: 20200312
  7. IDELVION [Suspect]
     Active Substance: COAGULATION FACTOR IX RECOMBINANT HUMAN
     Dosage: 4500 INTERNATIONAL UNIT
     Route: 065
     Dates: start: 20200312
  8. IDELVION [Suspect]
     Active Substance: COAGULATION FACTOR IX RECOMBINANT HUMAN
     Dosage: 4500 INTERNATIONAL UNIT
     Route: 065
     Dates: start: 20200314
  9. IDELVION [Suspect]
     Active Substance: COAGULATION FACTOR IX RECOMBINANT HUMAN
     Dosage: 4500 INTERNATIONAL UNIT
     Route: 065
     Dates: start: 20200319
  10. IDELVION [Suspect]
     Active Substance: COAGULATION FACTOR IX RECOMBINANT HUMAN
     Dosage: 4500 INTERNATIONAL UNIT
     Route: 065
     Dates: start: 20200323
  11. IDELVION [Suspect]
     Active Substance: COAGULATION FACTOR IX RECOMBINANT HUMAN
     Dosage: 4500 INTERNATIONAL UNIT
     Route: 042
     Dates: start: 20200309
  12. IDELVION [Suspect]
     Active Substance: COAGULATION FACTOR IX RECOMBINANT HUMAN
     Dosage: 4500 INTERNATIONAL UNIT
     Route: 065
     Dates: start: 20200323
  13. IDELVION [Suspect]
     Active Substance: COAGULATION FACTOR IX RECOMBINANT HUMAN
     Indication: FACTOR IX DEFICIENCY
     Dosage: 1051 INTERNATIONAL UNIT, EVERY 3 DAYS
     Route: 042
     Dates: start: 202003
  14. IDELVION [Suspect]
     Active Substance: COAGULATION FACTOR IX RECOMBINANT HUMAN
     Dosage: 4500 INTERNATIONAL UNIT
     Route: 042
     Dates: start: 20200310
  15. IDELVION [Suspect]
     Active Substance: COAGULATION FACTOR IX RECOMBINANT HUMAN
     Dosage: 4500 INTERNATIONAL UNIT
     Route: 065
     Dates: start: 20200317
  16. IDELVION [Suspect]
     Active Substance: COAGULATION FACTOR IX RECOMBINANT HUMAN
     Dosage: 3500 INTERNATIONAL UNIT
     Route: 065
     Dates: start: 20200331
  17. IDELVION [Suspect]
     Active Substance: COAGULATION FACTOR IX RECOMBINANT HUMAN
     Dosage: 3500 INTERNATIONAL UNIT, SINGLE
     Route: 065
     Dates: start: 20200327
  18. IDELVION [Suspect]
     Active Substance: COAGULATION FACTOR IX RECOMBINANT HUMAN
     Dosage: 1000 MILLIGRAM, SINGLE
     Route: 042
     Dates: start: 202003
  19. IDELVION [Suspect]
     Active Substance: COAGULATION FACTOR IX RECOMBINANT HUMAN
     Dosage: 1000 MILLIGRAM, SINGLE
     Route: 042
     Dates: start: 202003
  20. IDELVION [Suspect]
     Active Substance: COAGULATION FACTOR IX RECOMBINANT HUMAN
     Dosage: 4500 INTERNATIONAL UNIT
     Route: 042
     Dates: start: 20200310
  21. IDELVION [Suspect]
     Active Substance: COAGULATION FACTOR IX RECOMBINANT HUMAN
     Dosage: 4500 INTERNATIONAL UNIT
     Route: 065
     Dates: start: 20200319
  22. IDELVION [Suspect]
     Active Substance: COAGULATION FACTOR IX RECOMBINANT HUMAN
     Dosage: 3500 INTERNATIONAL UNIT, SINGLE
     Route: 065
     Dates: start: 20200329
  23. AMICAR [Concomitant]
     Active Substance: AMINOCAPROIC ACID
     Dosage: 5 TOTAL, EVERY 6 HOURS
     Route: 048
     Dates: start: 20200313, end: 20200323
  24. IDELVION [Suspect]
     Active Substance: COAGULATION FACTOR IX RECOMBINANT HUMAN
     Dosage: 4500 INTERNATIONAL UNIT
     Route: 042
     Dates: start: 20200311
  25. IDELVION [Suspect]
     Active Substance: COAGULATION FACTOR IX RECOMBINANT HUMAN
     Dosage: 3500 INTERNATIONAL UNIT, SINGLE
     Route: 065
     Dates: start: 20200325
  26. IDELVION [Suspect]
     Active Substance: COAGULATION FACTOR IX RECOMBINANT HUMAN
     Dosage: 3500 INTERNATIONAL UNIT
     Route: 065
     Dates: start: 20200331
  27. IDELVION [Suspect]
     Active Substance: COAGULATION FACTOR IX RECOMBINANT HUMAN
     Dosage: 3500 INTERNATIONAL UNIT, SINGLE
     Route: 065
     Dates: start: 20200329
  28. IDELVION [Suspect]
     Active Substance: COAGULATION FACTOR IX RECOMBINANT HUMAN
     Indication: FACTOR IX DEFICIENCY
     Dosage: 1051 INTERNATIONAL UNIT, EVERY 3 DAYS
     Route: 042
     Dates: start: 202003
  29. IDELVION [Suspect]
     Active Substance: COAGULATION FACTOR IX RECOMBINANT HUMAN
     Dosage: 4500 INTERNATIONAL UNIT
     Route: 042
     Dates: start: 20200309
  30. IDELVION [Suspect]
     Active Substance: COAGULATION FACTOR IX RECOMBINANT HUMAN
     Dosage: 4500 INTERNATIONAL UNIT
     Route: 065
     Dates: start: 20200314
  31. IDELVION [Suspect]
     Active Substance: COAGULATION FACTOR IX RECOMBINANT HUMAN
     Dosage: 4500 INTERNATIONAL UNIT
     Route: 065
     Dates: start: 20200316
  32. AMICAR [Concomitant]
     Active Substance: AMINOCAPROIC ACID
     Dosage: 3 TABS EVERY 6 HOURS
     Route: 065
     Dates: start: 20200309, end: 20200313

REACTIONS (4)
  - Post procedural haemorrhage [Recovered/Resolved]
  - Sinus operation [Recovered/Resolved]
  - Nasal septum deviation [Recovered/Resolved]
  - Drug ineffective [Recovered/Resolved]

NARRATIVE: CASE EVENT DATE: 202003
